FAERS Safety Report 8957031 (Version 1)
Quarter: 2012Q4

REPORT INFORMATION
  Report Type: 
  Country: US (occurrence: US)
  Receive Date: 20121211
  Receipt Date: 20121211
  Transmission Date: 20130627
  Serious: No
  Sender: FDA-Public Use
  Company Number: US-PFIZER INC-2012307456

PATIENT
  Age: 57 Year
  Sex: Female
  Weight: 68.48 kg

DRUGS (4)
  1. PROTONIX [Suspect]
     Indication: ACID REFLUX (OESOPHAGEAL)
     Dosage: 40 mg, 2x/day
     Route: 048
     Dates: end: 201204
  2. PROTONIX [Suspect]
     Dosage: 40 mg, 2x/day
     Route: 048
     Dates: start: 201206
  3. SIMVASTATIN [Concomitant]
     Indication: HIGH CHOLESTEROL
     Dosage: UNK
  4. VITAMIN D [Concomitant]
     Dosage: UNK

REACTIONS (1)
  - Head discomfort [Unknown]
